FAERS Safety Report 9924811 (Version 1)
Quarter: 2014Q1

REPORT INFORMATION
  Report Type: Spontaneous
  Country: US (occurrence: None)
  Receive Date: 20140221
  Receipt Date: 20140221
  Transmission Date: 20141002
  Serious: Yes (Life-Threatening, Hospitalization, Other)
  Sender: FDA-Public Use
  Company Number: US-ZYDUS-002540

PATIENT
  Age: 78 Year
  Sex: Male

DRUGS (1)
  1. AMIODARONE (AMIODARONE) [Suspect]
     Indication: ATRIAL FIBRILLATION

REACTIONS (3)
  - Myxoedema coma [None]
  - Cardiac arrest [None]
  - Ascites [None]
